FAERS Safety Report 21100927 (Version 1)
Quarter: 2022Q3

REPORT INFORMATION
  Report Type: Spontaneous
  Country: US (occurrence: US)
  Receive Date: 20220719
  Receipt Date: 20220719
  Transmission Date: 20221026
  Serious: No
  Sender: FDA-Public Use
  Company Number: US-PERRIGO-21US009549

PATIENT

DRUGS (1)
  1. MINOXIDIL [Suspect]
     Active Substance: MINOXIDIL
     Indication: Product used for unknown indication
     Dosage: UNK
     Route: 061
     Dates: start: 20210527

REACTIONS (5)
  - Pruritus [Unknown]
  - Seborrhoea [Unknown]
  - Skin discomfort [Unknown]
  - Hypersensitivity [Unknown]
  - Application site pruritus [Unknown]

NARRATIVE: CASE EVENT DATE: 20210101
